FAERS Safety Report 9832969 (Version 2)
Quarter: 2014Q1

REPORT INFORMATION
  Report Type: Spontaneous
  Country: CH (occurrence: CH)
  Receive Date: 20140121
  Receipt Date: 20140121
  Transmission Date: 20141002
  Serious: Yes (Other)
  Sender: FDA-Public Use
  Company Number: CH-009507513-1311CHE013072

PATIENT
  Age: 28 Year
  Sex: Female

DRUGS (3)
  1. NUVARING [Suspect]
     Indication: CONTRACEPTION
     Dosage: UNK
     Route: 067
     Dates: start: 20131015, end: 20131021
  2. MIFEGYNE [Suspect]
     Indication: ABORTION INDUCED
     Dosage: 200 MG, QD
     Route: 048
     Dates: start: 20131012, end: 20131012
  3. CYTOTEC [Suspect]
     Indication: ABORTION INDUCED
     Dosage: 400 MICROGRAM, BID
     Route: 048
     Dates: start: 20131014, end: 20131014

REACTIONS (2)
  - Abortion induced [Recovered/Resolved]
  - Exposure during pregnancy [Recovered/Resolved]
